FAERS Safety Report 4681759-5 (Version None)
Quarter: 2005Q2

REPORT INFORMATION
  Report Type: 
  Country: None (occurrence: None)
  Receive Date: 20050603
  Receipt Date: 20050214
  Transmission Date: 20051028
  Serious: Yes (Life-Threatening, Hospitalization, Other)
  Sender: FDA-Public Use
  Company Number: US-ABBOTT-05P-163-0290655-00

PATIENT
  Sex: Male

DRUGS (42)
  1. BIAXIN [Suspect]
     Indication: PROPHYLAXIS
     Route: 048
     Dates: start: 20041101
  2. BIAXIN [Suspect]
     Route: 048
     Dates: start: 20031231, end: 20040524
  3. BIAXIN [Suspect]
     Route: 048
     Dates: start: 20040525, end: 20041031
  4. POSACONAZOLE [Suspect]
     Indication: FUNGAL INFECTION
     Route: 048
     Dates: start: 20030624
  5. CIPROFLOXACIN HCL [Suspect]
     Indication: PROPHYLAXIS
     Route: 048
     Dates: start: 20031231, end: 20040524
  6. CIPROFLOXACIN HCL [Suspect]
     Route: 048
     Dates: start: 20040525, end: 20041031
  7. CIPROFLOXACIN HCL [Suspect]
     Route: 048
     Dates: start: 20041101, end: 20050128
  8. ZOCOR [Concomitant]
     Indication: DRUG USE FOR UNKNOWN INDICATION
  9. PREDNISONE [Concomitant]
     Indication: DRUG USE FOR UNKNOWN INDICATION
  10. METHOTREXATE [Concomitant]
     Indication: PROPHYLAXIS AGAINST TRANSPLANT REJECTION
     Dates: start: 20040525
  11. TACROLIMUS [Concomitant]
     Indication: DRUG USE FOR UNKNOWN INDICATION
  12. MYCOPHENOLATE MOFETIL [Concomitant]
     Indication: DRUG USE FOR UNKNOWN INDICATION
  13. OXYCODONE HCL [Concomitant]
     Indication: DRUG USE FOR UNKNOWN INDICATION
  14. BACTRIM [Concomitant]
     Indication: INFECTION PROPHYLAXIS
  15. FUROSEMIDE [Concomitant]
     Indication: DRUG USE FOR UNKNOWN INDICATION
  16. DILTIAZEM [Concomitant]
     Indication: HYPERTENSION
     Dates: start: 20031231
  17. SALBUTAMOL [Concomitant]
     Indication: DRUG USE FOR UNKNOWN INDICATION
  18. ACETYLSALICYLIC ACID [Concomitant]
     Indication: DRUG USE FOR UNKNOWN INDICATION
  19. FOLATE [Concomitant]
     Indication: DRUG USE FOR UNKNOWN INDICATION
     Dates: start: 20040525
  20. IMMUNOGLOBULIN HUMAN NORMAL [Concomitant]
     Indication: DRUG USE FOR UNKNOWN INDICATION
     Dates: start: 20041230, end: 20041230
  21. TRIAZOLAM [Concomitant]
     Indication: DRUG USE FOR UNKNOWN INDICATION
  22. KAPSOVIT [Concomitant]
     Indication: DRUG USE FOR UNKNOWN INDICATION
  23. INSULIN [Concomitant]
     Indication: DRUG USE FOR UNKNOWN INDICATION
  24. MAGNESIUM OXIDE [Concomitant]
     Indication: DRUG USE FOR UNKNOWN INDICATION
     Dates: start: 20021226, end: 20041229
  25. METOLAZONE [Concomitant]
     Indication: DRUG USE FOR UNKNOWN INDICATION
  26. EPOGEN [Concomitant]
     Indication: DRUG USE FOR UNKNOWN INDICATION
  27. PANTOPRAZOLE [Concomitant]
     Indication: DRUG USE FOR UNKNOWN INDICATION
  28. SIMVASTATIN [Concomitant]
     Indication: DRUG USE FOR UNKNOWN INDICATION
  29. ONDANSETRON HYDROCHLORIDE [Concomitant]
     Indication: DRUG USE FOR UNKNOWN INDICATION
  30. MEROPENAM [Concomitant]
     Indication: PNEUMONIA
     Dates: start: 20041228, end: 20050104
  31. VANCOMYCIN [Concomitant]
     Indication: PNEUMONIA
     Dates: start: 20041225, end: 20050101
  32. RANITIDINE [Concomitant]
     Indication: PROPHYLAXIS AGAINST GASTROINTESTINAL ULCER
     Dates: start: 20021219, end: 20041031
  33. METOPROLOL [Concomitant]
     Indication: HYPERTENSION
     Dates: start: 20030121, end: 20041229
  34. TRIAZOLAM [Concomitant]
     Indication: INSOMNIA
     Dates: start: 20021226, end: 20041229
  35. EPOETIN ALFA [Concomitant]
     Indication: PROPHYLAXIS AGAINST TRANSPLANT REJECTION
     Dates: start: 20041227, end: 20041227
  36. ALPRAZOLAM [Concomitant]
     Indication: INSOMNIA
     Dates: start: 20041225
  37. CLAVULIN [Concomitant]
     Indication: PNEUMONIA
     Dates: start: 20050104, end: 20050114
  38. DARBEPOETIN ALFA [Concomitant]
     Indication: DRUG USE FOR UNKNOWN INDICATION
     Dates: start: 20050105
  39. METOLAZONE [Concomitant]
     Indication: HYPERTENSION
     Dates: start: 20050105
  40. COMBIVENT [Concomitant]
     Indication: DYSPNOEA
     Dates: start: 20050101
  41. PANTOPRAZOLE [Concomitant]
     Indication: PEPTIC ULCER
     Dates: start: 20040111
  42. OSELTAMIVIR [Concomitant]
     Indication: INFLUENZA
     Dates: start: 20001230, end: 20050104

REACTIONS (22)
  - ACTIVATED PARTIAL THROMBOPLASTIN TIME PROLONGED [None]
  - CHEST DISCOMFORT [None]
  - CHEST PAIN [None]
  - COUGH [None]
  - DILATATION ATRIAL [None]
  - DILATATION VENTRICULAR [None]
  - ELECTROCARDIOGRAM QT CORRECTED INTERVAL PROLONGED [None]
  - HYPERHIDROSIS [None]
  - INFECTION [None]
  - LEUKOCYTOSIS [None]
  - MUSCULOSKELETAL PAIN [None]
  - MYOCARDIAL INFARCTION [None]
  - NAUSEA [None]
  - PAIN IN EXTREMITY [None]
  - PCO2 DECREASED [None]
  - PRODUCTIVE COUGH [None]
  - PSYCHOSOMATIC DISEASE [None]
  - RENAL FAILURE [None]
  - RENAL FAILURE CHRONIC [None]
  - SINUS TACHYCARDIA [None]
  - TROPONIN I INCREASED [None]
  - VENTRICULAR EXTRASYSTOLES [None]
